FAERS Safety Report 4426773-X (Version None)
Quarter: 2004Q3

REPORT INFORMATION
  Report Type: 
  Country: None (occurrence: None)
  Receive Date: 20040812
  Receipt Date: 20040812
  Transmission Date: 20050211
  Serious: Yes (Hospitalization)
  Sender: FDA-Public Use
  Company Number: None

PATIENT
  Age: 79 Year
  Sex: Male
  Weight: 58.4 kg

DRUGS (5)
  1. LISINOPRIL [Suspect]
     Indication: HYPERTENSION
     Dosage: 20 MG PO ONCE DAILY
     Route: 048
     Dates: start: 20030221, end: 20030713
  2. NUTRITION SUPL ENSURE PLUS/VANILLA LIQ [Concomitant]
  3. THIAMINE HCL [Concomitant]
  4. FERROUS SO4 [Concomitant]
  5. DILTIAZEM (INWOOD) [Concomitant]

REACTIONS (3)
  - ANGIONEUROTIC OEDEMA [None]
  - SWELLING FACE [None]
  - SWOLLEN TONGUE [None]
